FAERS Safety Report 8542871-3 (Version None)
Quarter: 2012Q3

REPORT INFORMATION
  Report Type: 
  Country: None (occurrence: None)
  Receive Date: 20120727
  Receipt Date: 20120719
  Transmission Date: 20120928
  Serious: Yes (Death, Life-Threatening, Hospitalization, Other)
  Sender: FDA-Public Use
  Company Number: US-009507513-1107USA02153

PATIENT

DRUGS (12)
  1. PLACEBO [Suspect]
     Route: 048
     Dates: start: 20070717, end: 20100716
  2. LOPRESSOR [Concomitant]
     Dosage: 75 MG, QD
     Route: 048
     Dates: start: 20070714, end: 20120623
  3. METOPROLOL SUCCINATE [Concomitant]
     Dosage: 10 MG, QD
     Route: 048
     Dates: start: 20070714
  4. CHOLECALCIFEROL [Concomitant]
     Dosage: 2000 IU, QD
     Route: 048
     Dates: start: 20101113
  5. SIMVASTATIN [Concomitant]
     Dosage: 20 MG, QD
     Route: 048
     Dates: start: 20101113, end: 20120623
  6. SIMVASTATIN [Concomitant]
     Dosage: 40 MG, QD
     Route: 048
     Dates: start: 20101113
  7. PLACEBO [Suspect]
     Indication: ACUTE CORONARY SYNDROME
     Route: 048
     Dates: start: 20070717, end: 20100716
  8. WARFARIN SODIUM [Concomitant]
     Dosage: 5 MG, QD
     Route: 048
     Dates: start: 20070831
  9. PRINIVIL [Concomitant]
     Dosage: 40 MG, QD
     Route: 048
     Dates: start: 20070714, end: 20120623
  10. CITALOPRAM HYDROBROMIDE [Concomitant]
     Dosage: 10 MG, QD
     Route: 048
     Dates: start: 20110401
  11. VITAMIN D (UNSPECIFIED) [Concomitant]
     Dosage: 1000 IU, QD
     Route: 048
     Dates: start: 20101113
  12. SIMVASTATIN [Suspect]
     Indication: ACUTE CORONARY SYNDROME
     Dosage: UNK
     Route: 048
     Dates: start: 20070717

REACTIONS (3)
  - NON-SMALL CELL LUNG CANCER [None]
  - METASTATIC NEOPLASM [None]
  - NON-SMALL CELL LUNG CANCER METASTATIC [None]
